FAERS Safety Report 8370654-6 (Version None)
Quarter: 2012Q2

REPORT INFORMATION
  Report Type: 
  Country: None (occurrence: None)
  Receive Date: 20120518
  Receipt Date: 20120510
  Transmission Date: 20120825
  Serious: Yes (Other)
  Sender: FDA-Public Use
  Company Number: US-US-EMD SERONO, INC.-7132326

PATIENT
  Sex: Female

DRUGS (3)
  1. REBIF [Suspect]
     Indication: PRODUCT USED FOR UNKNOWN INDICATION
     Dates: end: 20111201
  2. REBIF [Suspect]
     Route: 058
     Dates: start: 20120318
  3. GRALISE [Concomitant]
     Indication: NEURALGIA

REACTIONS (2)
  - EYE HAEMORRHAGE [None]
  - INJECTION SITE ERYTHEMA [None]
